FAERS Safety Report 26140797 (Version 1)
Quarter: 2025Q4

REPORT INFORMATION
  Report Type: Spontaneous
  Country: EU (occurrence: EU)
  Receive Date: 20251210
  Receipt Date: 20251210
  Transmission Date: 20260117
  Serious: Yes (Other)
  Sender: ELI LILLY AND COMPANY
  Company Number: EU-ELI_LILLY_AND_COMPANY-DE202512000316

PATIENT
  Age: 55 Year
  Sex: Female

DRUGS (4)
  1. MOUNJARO [Suspect]
     Active Substance: TIRZEPATIDE
     Indication: Weight control
     Dosage: 2.5 MG, WEEKLY (1/W)
     Route: 065
  2. LEVOTHYROXINE SODIUM [Concomitant]
     Active Substance: LEVOTHYROXINE SODIUM
     Indication: Product used for unknown indication
  3. ATACAND [Concomitant]
     Active Substance: CANDESARTAN CILEXETIL
     Indication: Hypertension
  4. LERCANIDIPINO [LERCANIDIPINE] [Concomitant]
     Indication: Hypertension

REACTIONS (6)
  - Syncope [Unknown]
  - Circulatory collapse [Unknown]
  - Hyperhidrosis [Unknown]
  - Hypoglycaemia [Unknown]
  - Nausea [Unknown]
  - Abdominal pain upper [Unknown]
